FAERS Safety Report 23432054 (Version 2)
Quarter: 2024Q1

REPORT INFORMATION
  Report Type: Spontaneous
  Country: US (occurrence: US)
  Receive Date: 20240123
  Receipt Date: 20240209
  Transmission Date: 20240409
  Serious: Yes (Hospitalization, Other)
  Sender: FDA-Public Use
  Company Number: US-HIKMA PHARMACEUTICALS USA INC.-US-H14001-24-00345

PATIENT
  Age: 60 Year
  Sex: Male
  Weight: 92.8 kg

DRUGS (15)
  1. CYCLOPHOSPHAMIDE [Suspect]
     Active Substance: CYCLOPHOSPHAMIDE
     Indication: B-cell type acute leukaemia
     Dosage: 150 MG/M2, CYCLE 1, 3, EVERY 12 HRS X 6 DOSES, DAYS 1-3
     Route: 042
     Dates: start: 20231026
  2. CYTARABINE [Suspect]
     Active Substance: CYTARABINE
     Dosage: 100 MG, CYCLE 1,2, DAY 2, DAY 8
     Route: 037
     Dates: end: 20231130
  3. CYTARABINE [Suspect]
     Active Substance: CYTARABINE
     Indication: B-cell type acute leukaemia
     Dosage: 500 MG/M2 CYCLIC (500 MG/M2/DOSE, CYCLE 2, 4, EVERY 12 HRS X 4 DOSES, DAYS 2, 3
     Route: 042
     Dates: start: 20231129, end: 20231130
  4. DEXAMETHASONE [Suspect]
     Active Substance: DEXAMETHASONE
     Indication: B-cell type acute leukaemia
     Dosage: 20 MG, CYCLE 1, 3, DAYS 1-4, DAYS 11-14
     Route: 042
     Dates: start: 20231026, end: 20231129
  5. DEXAMETHASONE [Suspect]
     Active Substance: DEXAMETHASONE
     Indication: B-cell type acute leukaemia
     Dosage: 20 MG, CYCLE 1, 3, DAYS 1-4, DAYS  11-14
     Route: 048
     Dates: start: 20231026
  6. INOTUZUMAB OZOGAMICIN [Suspect]
     Active Substance: INOTUZUMAB OZOGAMICIN
     Indication: B-cell type acute leukaemia
     Dosage: CYCLE 1: 0.6 MG/M2 D2; CYCLE 1:TOTAL 0.9 MG/M2
     Route: 042
  7. INOTUZUMAB OZOGAMICIN [Suspect]
     Active Substance: INOTUZUMAB OZOGAMICIN
     Dosage: CYCLE 1: 0.3 MG/M2 D8; CYCLE 1:TOTAL 0.9 MG/M2
     Route: 042
  8. INOTUZUMAB OZOGAMICIN [Suspect]
     Active Substance: INOTUZUMAB OZOGAMICIN
     Dosage: CYCLE 2-4: 0.3 MG/M2 D2; CYCLES 2, 3, 4: TOTAL 0.6  MG/M2
     Route: 042
     Dates: start: 20231129
  9. INOTUZUMAB OZOGAMICIN [Suspect]
     Active Substance: INOTUZUMAB OZOGAMICIN
     Dosage: CYCLE 2-4: 0.3 MG/M2 D8; CYCLES 2, 3, 4:  TOTAL 0.6 MG/M2
     Route: 042
     Dates: end: 20231202
  10. MESNA [Suspect]
     Active Substance: MESNA
     Indication: B-cell type acute leukaemia
     Dosage: 300 MG/M2, CYCLE 1, 3, DAYS 1-3
     Route: 065
  11. METHOTREXATE [Suspect]
     Active Substance: METHOTREXATE
     Dosage: 12 MG, CYCLE 1, 2, DAY 2, DAY 8
     Route: 037
     Dates: end: 20231205
  12. METHOTREXATE [Suspect]
     Active Substance: METHOTREXATE
     Indication: B-cell type acute leukaemia
     Dosage: 250 MG/M2, CYCLE 2, 4, DAY 1
     Route: 042
     Dates: start: 20231128, end: 20231128
  13. METHYLPREDNISOLONE [Suspect]
     Active Substance: METHYLPREDNISOLONE
     Indication: B-cell type acute leukaemia
     Dosage: 50 MG, CYCLE 2, 4, EVERY 12 HRS X 6 DOSES, DAYS 1-3
     Route: 042
     Dates: start: 20231128, end: 20231130
  14. RITUXIMAB [Suspect]
     Active Substance: RITUXIMAB
     Indication: B-cell type acute leukaemia
     Dosage: 375 MG/M2, CYCLE 1-4; DAY 2, DAY 8
     Route: 042
  15. VINCRISTINE SULFATE [Suspect]
     Active Substance: VINCRISTINE SULFATE
     Indication: B-cell type acute leukaemia
     Dosage: 2 MG, CYCLE 1, 3, DAY 1, DAY 8
     Route: 042
     Dates: start: 20231026, end: 20231102

REACTIONS (5)
  - Febrile neutropenia [Recovering/Resolving]
  - Oropharyngeal pain [Unknown]
  - Rhinorrhoea [Unknown]
  - Ear discomfort [Unknown]
  - Pyrexia [Recovering/Resolving]

NARRATIVE: CASE EVENT DATE: 20231206
